FAERS Safety Report 7604120-X (Version None)
Quarter: 2011Q2

REPORT INFORMATION
  Report Type: 
  Country: None (occurrence: None)
  Receive Date: 20110630
  Receipt Date: 20110607
  Transmission Date: 20111010
  Serious: Yes (Other)
  Sender: FDA-Public Use
  Company Number: AUR-APL-2011-02837

PATIENT
  Age: 80 Year
  Sex: Male

DRUGS (10)
  1. BISOPROLOL FUMARATE [Concomitant]
  2. RANITIDINE [Concomitant]
  3. VALSARTAN [Concomitant]
  4. SIMVASTATIN [Suspect]
     Indication: PRODUCT USED FOR UNKNOWN INDICATION
     Dosage: 40 MG (40 MG, 1 IN 1 D),
  5. AMIODARONE HCL [Suspect]
     Indication: PRODUCT USED FOR UNKNOWN INDICATION
     Dosage: (200 MG, 1 D),
  6. SPIRONOLACTONE [Concomitant]
  7. BUMETANIDE [Concomitant]
  8. ASPIRIN [Concomitant]
  9. HEPARIN [Concomitant]
  10. INSULIN (INSULIN) [Concomitant]

REACTIONS (9)
  - RENAL IMPAIRMENT [None]
  - POLYNEUROPATHY [None]
  - RHABDOMYOLYSIS [None]
  - DRUG INTERACTION [None]
  - HYPERKALAEMIA [None]
  - TOXICITY TO VARIOUS AGENTS [None]
  - OEDEMA PERIPHERAL [None]
  - TROPONIN INCREASED [None]
  - ATRIAL FIBRILLATION [None]
